FAERS Safety Report 25804469 (Version 1)
Quarter: 2025Q3

REPORT INFORMATION
  Report Type: Report from Study
  Country: CA (occurrence: CA)
  Receive Date: 20250915
  Receipt Date: 20250915
  Transmission Date: 20251021
  Serious: Yes (Hospitalization)
  Sender: ABBVIE
  Company Number: CA-ABBVIE-6457575

PATIENT
  Age: 78 Year
  Sex: Male

DRUGS (1)
  1. VYALEV [Suspect]
     Active Substance: FOSCARBIDOPA\FOSLEVODOPA
     Indication: Product used for unknown indication
     Route: 058
     Dates: start: 20250204

REACTIONS (12)
  - Fluid retention [Unknown]
  - On and off phenomenon [Recovering/Resolving]
  - Cardiac failure chronic [Unknown]
  - Oedema [Unknown]
  - Asthenia [Unknown]
  - Lethargy [Unknown]
  - Weight increased [Unknown]
  - Balance disorder [Unknown]
  - Motor dysfunction [Unknown]
  - Product size issue [Unknown]
  - Device issue [Unknown]
  - Device power source issue [Unknown]

NARRATIVE: CASE EVENT DATE: 20250101
